FAERS Safety Report 7884686-5 (Version None)
Quarter: 2011Q4

REPORT INFORMATION
  Report Type: 
  Country: None (occurrence: None)
  Receive Date: 20111102
  Receipt Date: 20111027
  Transmission Date: 20120403
  Serious: Yes (Hospitalization, Other)
  Sender: FDA-Public Use
  Company Number: GB-PFIZER INC-2011215528

PATIENT
  Age: 79 Year
  Sex: Female

DRUGS (1)
  1. LOPID [Suspect]
     Dosage: 600 MG, UNK

REACTIONS (1)
  - CEREBROVASCULAR ACCIDENT [None]
